FAERS Safety Report 5905739-4 (Version None)
Quarter: 2008Q4

REPORT INFORMATION
  Report Type: 
  Country: None (occurrence: None)
  Receive Date: 20081001
  Receipt Date: 20081001
  Transmission Date: 20090506
  Serious: Yes (Hospitalization)
  Sender: FDA-Public Use
  Company Number: None

PATIENT
  Age: 74 Year
  Sex: Male
  Weight: 72.8 kg

DRUGS (1)
  1. METHADONE HCL [Suspect]
     Indication: PAIN
     Dosage: 20 MG QID PO
     Route: 048
     Dates: start: 20030313, end: 20080818

REACTIONS (6)
  - BACK PAIN [None]
  - CONFUSIONAL STATE [None]
  - DELIRIUM [None]
  - LETHARGY [None]
  - SOMNOLENCE [None]
  - URINARY RETENTION [None]
